FAERS Safety Report 17325456 (Version 2)
Quarter: 2020Q1

REPORT INFORMATION
  Report Type: Spontaneous
  Country: DE (occurrence: DE)
  Receive Date: 20200127
  Receipt Date: 20200204
  Transmission Date: 20200409
  Serious: Yes (Other)
  Sender: FDA-Public Use
  Company Number: DE-MYLANLABS-2020M1008414

PATIENT
  Age: 35 Year
  Sex: Female
  Weight: 60 kg

DRUGS (2)
  1. NAPROXEN. [Suspect]
     Active Substance: NAPROXEN
     Indication: SPONDYLITIS
     Dosage: 500 MILLIGRAM (BIS ZU 2XTGL.)
     Route: 048
  2. DICLOFENAC [Suspect]
     Active Substance: DICLOFENAC
     Indication: SPONDYLITIS
     Dosage: 75 MILLIGRAM (BIS ZU 2XTGL.)
     Route: 048

REACTIONS (2)
  - Vulvovaginitis [Recovered/Resolved]
  - Cervicitis [Recovered/Resolved]

NARRATIVE: CASE EVENT DATE: 20190311
